FAERS Safety Report 6792677 (Version 4)
Quarter: 2020Q3

REPORT INFORMATION
  Report Type: Report from Study
  Country: HU (occurrence: HU)
  Receive Date: 20081021
  Receipt Date: 20090320
  Transmission Date: 20201105
  Serious: Yes (Death, Hospitalization)
  Sender: FDA-Public Use
  Company Number: HU-WYE-H06323908

PATIENT
  Age: 77 Year
  Sex: Male
  Weight: 57 kg

DRUGS (3)
  1. AVASTIN [Suspect]
     Active Substance: BEVACIZUMAB
     Indication: RENAL CELL CARCINOMA
     Route: 042
     Dates: start: 20080925, end: 20081009
  2. ROFERON?A [Suspect]
     Active Substance: INTERFERON ALFA-2A
     Indication: RENAL CELL CARCINOMA
     Dosage: 3 MU ^WEEKLY 3^
     Route: 058
     Dates: start: 20080925, end: 20081009
  3. UNSPECIFIED INGREDIENT [Concomitant]
     Active Substance: UNSPECIFIED INGREDIENT
     Indication: MEDICAL DIET
     Dosage: NOT PROVIDED
     Route: 065
     Dates: start: 20080918

REACTIONS (5)
  - General physical health deterioration [None]
  - Decreased appetite [Recovered/Resolved]
  - Haemorrhoids [None]
  - Asthenia [Fatal]
  - Rectal haemorrhage [None]

NARRATIVE: CASE EVENT DATE: 20080928
